FAERS Safety Report 13168102 (Version 10)
Quarter: 2019Q1

REPORT INFORMATION
  Report Type: Spontaneous
  Country: US (occurrence: US)
  Receive Date: 20170131
  Receipt Date: 20190309
  Transmission Date: 20190417
  Serious: Yes (Other)
  Sender: FDA-Public Use
  Company Number: US-TEVA-727605ACC

PATIENT
  Age: 54 Year
  Sex: Female

DRUGS (28)
  1. TRAMADOL HYDROCHLORIDE. [Concomitant]
     Active Substance: TRAMADOL HYDROCHLORIDE
  2. METHYLPHENIDATE. [Concomitant]
     Active Substance: METHYLPHENIDATE
  3. AMITRIPTYLINE [Concomitant]
     Active Substance: AMITRIPTYLINE
  4. BACLOFEN. [Concomitant]
     Active Substance: BACLOFEN
  5. LINZESS [Concomitant]
     Active Substance: LINACLOTIDE
  6. MECLIZINE [Concomitant]
     Active Substance: MECLIZINE HYDROCHLORIDE
  7. LIDODERM [Concomitant]
     Active Substance: LIDOCAINE
  8. CHLORHEX [Concomitant]
  9. MELOXICAM. [Concomitant]
     Active Substance: MELOXICAM
  10. AMPYRA [Concomitant]
     Active Substance: DALFAMPRIDINE
  11. AMLODIPINE [Concomitant]
     Active Substance: AMLODIPINE BESYLATE
  12. SERTRALINE [Concomitant]
     Active Substance: SERTRALINE HYDROCHLORIDE
  13. OXYCODONE/APAP [Concomitant]
     Active Substance: ACETAMINOPHEN\OXYCODONE HYDROCHLORIDE
     Dosage: OXYCODONE/APAP : 5-325MG
  14. VITAMIN D [Concomitant]
     Active Substance: CHOLECALCIFEROL
     Dosage: 50000 UNIT
  15. IBUPROFEN. [Concomitant]
     Active Substance: IBUPROFEN
  16. OMEPRAZOLE. [Concomitant]
     Active Substance: OMEPRAZOLE
  17. COPAXONE [Suspect]
     Active Substance: GLATIRAMER ACETATE
     Indication: MULTIPLE SCLEROSIS
     Dosage: PREFILLED SYRINGE, AS DIRECTED
     Route: 058
     Dates: start: 20150309
  18. SMZ/TMP [Concomitant]
     Active Substance: SULFAMETHOXAZOLE\TRIMETHOPRIM
  19. DICOFEN POTASSIUM [Concomitant]
  20. MOMETASONE [Concomitant]
     Active Substance: MOMETASONE
  21. GABAPENTIN. [Concomitant]
     Active Substance: GABAPENTIN
  22. PREDNISONE. [Concomitant]
     Active Substance: PREDNISONE
  23. SELENIUM SULFATE [Concomitant]
     Route: 065
  24. MODAFINIL. [Concomitant]
     Active Substance: MODAFINIL
  25. NAPROXEN. [Concomitant]
     Active Substance: NAPROXEN
  26. SKELAXIN [Concomitant]
     Active Substance: METAXALONE
  27. TIZANIDINE. [Concomitant]
     Active Substance: TIZANIDINE
  28. IPRATROPIUM [Concomitant]
     Active Substance: IPRATROPIUM

REACTIONS (15)
  - Anxiety [Unknown]
  - Walking aid user [Unknown]
  - Musculoskeletal stiffness [Not Recovered/Not Resolved]
  - Multiple sclerosis relapse [Not Recovered/Not Resolved]
  - Fatigue [Not Recovered/Not Resolved]
  - Product dose omission [Unknown]
  - Decreased interest [Unknown]
  - Therapy cessation [Unknown]
  - Dizziness [Recovered/Resolved]
  - Insomnia [Recovered/Resolved]
  - Muscular weakness [Unknown]
  - Myalgia [Not Recovered/Not Resolved]
  - Joint swelling [Unknown]
  - Visual impairment [Not Recovered/Not Resolved]
  - Gait disturbance [Unknown]

NARRATIVE: CASE EVENT DATE: 20171013
